FAERS Safety Report 8544624-9 (Version None)
Quarter: 2012Q3

REPORT INFORMATION
  Report Type: 
  Country: None (occurrence: None)
  Receive Date: 20120717
  Receipt Date: 20120706
  Transmission Date: 20120928
  Serious: Yes (Other)
  Sender: FDA-Public Use
  Company Number: USA/USA/12/0024995

PATIENT
  Age: 28 Month
  Sex: Male

DRUGS (1)
  1. LEVETIRACETAM [Suspect]
     Indication: PRODUCT USED FOR UNKNOWN INDICATION
     Dosage: 20 MG/KG, 1 D

REACTIONS (13)
  - ENCEPHALITIS [None]
  - GAZE PALSY [None]
  - FATIGUE [None]
  - BALANCE DISORDER [None]
  - CYANOSIS [None]
  - MOOD ALTERED [None]
  - CLUMSINESS [None]
  - GAIT DISTURBANCE [None]
  - AGGRESSION [None]
  - CHOREA [None]
  - TREMOR [None]
  - CRYING [None]
  - APHASIA [None]
